FAERS Safety Report 8260029-2 (Version None)
Quarter: 2012Q1

REPORT INFORMATION
  Report Type: 
  Country: None (occurrence: None)
  Receive Date: 20120327
  Receipt Date: 20080513
  Transmission Date: 20120608
  Serious: Yes (Death)
  Sender: FDA-Public Use
  Company Number: PHEH2008US04256

PATIENT
  Age: 38 Year
  Sex: Male
  Weight: 67.6 kg

DRUGS (4)
  1. OXYCODONE HYDROCHLORIDE [Concomitant]
  2. PHENERGAN HCL [Concomitant]
  3. OXYCONTIN [Concomitant]
  4. GLEEVEC [Suspect]
     Indication: CHRONIC MYELOID LEUKAEMIA
     Dosage: 400 MG, QD, ORAL
     Route: 048
     Dates: start: 20060821, end: 20080404

REACTIONS (6)
  - DRUG RESISTANCE [None]
  - HYPOPHAGIA [None]
  - VOMITING [None]
  - NAUSEA [None]
  - CHRONIC MYELOID LEUKAEMIA [None]
  - NEOPLASM MALIGNANT [None]
